FAERS Safety Report 25240149 (Version 1)
Quarter: 2025Q2

REPORT INFORMATION
  Report Type: Spontaneous
  Country: US (occurrence: None)
  Receive Date: 20250425
  Receipt Date: 20250425
  Transmission Date: 20250716
  Serious: Yes (Hospitalization)
  Sender: FDA-CTU
  Company Number: None

PATIENT
  Age: 71 Year
  Sex: Male

DRUGS (14)
  1. MYCOPHENOLIC ACID [Suspect]
     Active Substance: MYCOPHENOLIC ACID
     Indication: Heart transplant
     Dosage: 750  MG TWICE A DAY ORAL ?
     Route: 048
  2. TACROLIMUS [Suspect]
     Active Substance: TACROLIMUS
     Indication: Heart transplant
     Dosage: 4 MG TWICE A DAY ORAL
     Route: 048
  3. MELATONIN 3MG TABLETS [Concomitant]
  4. TRAVOPROST 0.004% OPHTH DROPS 2.5ML [Concomitant]
  5. ASPIRIN 81MG EC LOW DOSE TABLETS [Concomitant]
  6. CALCIUM CITRATE + D TABLETS [Concomitant]
  7. FLUDROCORTISONE 0.1MG TABLETS [Concomitant]
  8. JARDIANCE [Concomitant]
     Active Substance: EMPAGLIFLOZIN
  9. LEVOTHYROXINE 0.05MG (50MCG) TAB [Concomitant]
  10. MAGNESIUM 400MG CAPSULES [Concomitant]
  11. METFORMIN HYDROCHLORIDE [Concomitant]
     Active Substance: METFORMIN HYDROCHLORIDE
  12. OMEPRAZOLE [Concomitant]
     Active Substance: OMEPRAZOLE
  13. ROSUVASTATIN [Concomitant]
     Active Substance: ROSUVASTATIN
  14. SULFAMETH/TRIMETH 400-80MG TAB [Concomitant]

REACTIONS (2)
  - Herpes zoster [None]
  - Pain [None]

NARRATIVE: CASE EVENT DATE: 20250411
